FAERS Safety Report 17202295 (Version 5)
Quarter: 2024Q2

REPORT INFORMATION
  Report Type: Spontaneous
  Country: US (occurrence: US)
  Receive Date: 20191226
  Receipt Date: 20240517
  Transmission Date: 20240716
  Serious: Yes (Hospitalization, Other)
  Sender: FDA-Public Use
  Company Number: US-PFIZER INC-2019550928

PATIENT
  Age: 74 Year
  Sex: Male
  Weight: 127.89 kg

DRUGS (14)
  1. XELJANZ XR [Suspect]
     Active Substance: TOFACITINIB CITRATE
     Indication: Rheumatoid arthritis
     Dosage: 11 MG, 1X/DAY
     Route: 048
  2. FLONASE [Concomitant]
     Active Substance: FLUTICASONE PROPIONATE
     Dosage: MORE THAN 5 YEARS
  3. TYLENOL [Concomitant]
     Active Substance: ACETAMINOPHEN
     Dosage: MORE THAN 5 YEARS
  4. VITAMIN D3 [Concomitant]
     Active Substance: CHOLECALCIFEROL
     Dosage: MORE THAN 5 YEARS
  5. ARAVA [Concomitant]
     Active Substance: LEFLUNOMIDE
     Dosage: MORE THAN 5 YEARS
  6. SYNTHROID [Concomitant]
     Active Substance: LEVOTHYROXINE SODIUM
     Dosage: MORE THAN 5 YEARS
  7. CLARITIN [Concomitant]
     Active Substance: LORATADINE
     Dosage: MORE THAN 5 YEARS
  8. OXYBUTYNIN [Concomitant]
     Active Substance: OXYBUTYNIN\OXYBUTYNIN CHLORIDE
     Dosage: MORE THAN 5 YEARS
  9. FUROSEMIDE [Concomitant]
     Active Substance: FUROSEMIDE
     Dosage: MORE THAN 5 YEARS
  10. POTASSIUM CHLORIDE [Concomitant]
     Active Substance: POTASSIUM CHLORIDE
     Dosage: 2 YEARS
     Dates: start: 2022
  11. PRAVASTATIN [Concomitant]
     Active Substance: PRAVASTATIN
     Dosage: 1 YEARS
     Dates: start: 2023
  12. CLION [Concomitant]
     Dosage: 3 YEARS
     Dates: start: 2021
  13. ZINC [Concomitant]
     Active Substance: PYRITHIONE ZINC\ZINC\ZINC CHLORIDE
     Dosage: 3 YEARS
     Dates: start: 2021
  14. VITAMINS [Concomitant]
     Active Substance: VITAMINS
     Dosage: 10 YEARS

REACTIONS (3)
  - Hip fracture [Recovered/Resolved]
  - Fall [Unknown]
  - Memory impairment [Unknown]
